FAERS Safety Report 16214853 (Version 1)
Quarter: 2019Q2

REPORT INFORMATION
  Report Type: Spontaneous
  Country: US (occurrence: US)
  Receive Date: 20190418
  Receipt Date: 20190418
  Transmission Date: 20190711
  Serious: No
  Sender: FDA-Public Use
  Company Number: US-009507513-1903USA011239

PATIENT
  Age: 9 Year
  Sex: Female

DRUGS (4)
  1. CALCIPOTRIENE. [Suspect]
     Active Substance: CALCIPOTRIENE
     Indication: LICHEN SCLEROSUS
     Dosage: UNK
     Route: 061
  2. TRIAMCINOLONE [Suspect]
     Active Substance: TRIAMCINOLONE
     Indication: LICHEN SCLEROSUS
     Dosage: UNK
     Route: 026
  3. TACROLIMUS. [Suspect]
     Active Substance: TACROLIMUS
     Indication: LICHEN SCLEROSUS
     Dosage: UNK
  4. ELOCON [Suspect]
     Active Substance: MOMETASONE FUROATE
     Indication: LICHEN SCLEROSUS
     Dosage: UNK

REACTIONS (1)
  - Drug ineffective [Unknown]
